FAERS Safety Report 14095394 (Version 1)
Quarter: 2017Q4

REPORT INFORMATION
  Report Type: Spontaneous
  Country: DE (occurrence: DE)
  Receive Date: 20171017
  Receipt Date: 20171017
  Transmission Date: 20180321
  Serious: Yes (Other)
  Sender: FDA-Public Use
  Company Number: DE-SUN PHARMACEUTICAL INDUSTRIES LTD-2017RR-152478

PATIENT
  Age: 22 Year
  Sex: Female
  Weight: 65 kg

DRUGS (1)
  1. AZITHROMYCIN ANHYDROUS. [Suspect]
     Active Substance: AZITHROMYCIN ANHYDROUS
     Indication: DENTAL OPERATION
     Dosage: ON THE FIRST DAY 500MG, THEN 250MG PRO
     Route: 048
     Dates: start: 20170920

REACTIONS (4)
  - Leukocytosis [Unknown]
  - Vomiting [Unknown]
  - Enteritis [Unknown]
  - Sensory level abnormal [Unknown]

NARRATIVE: CASE EVENT DATE: 20170924
